FAERS Safety Report 16160646 (Version 1)
Quarter: 2019Q2

REPORT INFORMATION
  Report Type: Spontaneous
  Country: IT (occurrence: IT)
  Receive Date: 20190405
  Receipt Date: 20190405
  Transmission Date: 20190711
  Serious: Yes (Hospitalization)
  Sender: FDA-Public Use
  Company Number: IT-SUN PHARMACEUTICAL INDUSTRIES LTD-2019RR-204145

PATIENT
  Age: 63 Year
  Sex: Female

DRUGS (3)
  1. BROMAZEPAM AUROBINDO ITALIA 2,5 MG/ML GOCCE ORALI, SOLUZIONE [Suspect]
     Active Substance: BROMAZEPAM
     Indication: DEPRESSION
     Dosage: IN TOTAL
     Route: 048
     Dates: start: 20190312, end: 20190312
  2. ALPRAZOLAM. [Suspect]
     Active Substance: ALPRAZOLAM
     Indication: DEPRESSION
     Dosage: IN TOTAL
     Route: 048
     Dates: start: 20190312, end: 20190312
  3. ZOLPIDEM TARTRATE. [Suspect]
     Active Substance: ZOLPIDEM TARTRATE
     Indication: DEPRESSION
     Dosage: IN TOTAL
     Route: 048
     Dates: start: 20190312, end: 20190312

REACTIONS (2)
  - Sedation [Recovering/Resolving]
  - Fall [Recovering/Resolving]

NARRATIVE: CASE EVENT DATE: 20190312
